FAERS Safety Report 25404175 (Version 6)
Quarter: 2025Q4

REPORT INFORMATION
  Report Type: Spontaneous
  Country: EU (occurrence: EU)
  Receive Date: 20250606
  Receipt Date: 20251023
  Transmission Date: 20260117
  Serious: Yes (Other)
  Sender: NOVO NORDISK
  Company Number: EU-NOVOPROD-1440423

PATIENT
  Age: 41 Year
  Sex: Female
  Weight: 83 kg

DRUGS (2)
  1. OZEMPIC [Suspect]
     Active Substance: SEMAGLUTIDE
     Dosage: UNK (DIDN^T EVEN GIVE HERSELF THE FULL 1MG)
     Dates: end: 20250519
  2. OZEMPIC [Suspect]
     Active Substance: SEMAGLUTIDE
     Indication: Product used for unknown indication
     Dosage: 1 MG, QW
     Dates: start: 20250512

REACTIONS (9)
  - Injection site necrosis [Recovering/Resolving]
  - Counterfeit product administered [Recovered/Resolved]
  - Injection site vesicles [Recovering/Resolving]
  - Injection site pain [Recovering/Resolving]
  - Injection site pain [Recovering/Resolving]
  - Injection site inflammation [Recovering/Resolving]
  - Injection site erythema [Recovering/Resolving]
  - Product odour abnormal [Unknown]
  - Incorrect dose administered [Unknown]

NARRATIVE: CASE EVENT DATE: 20250512
